FAERS Safety Report 18554911 (Version 1)
Quarter: 2020Q4

REPORT INFORMATION
  Report Type: Spontaneous
  Country: US (occurrence: US)
  Receive Date: 20201127
  Receipt Date: 20201127
  Transmission Date: 20210114
  Serious: Yes (Hospitalization)
  Sender: FDA-Public Use
  Company Number: US-009507513-2011USA010657

PATIENT
  Age: 806 Month
  Sex: Male

DRUGS (3)
  1. BRILINTA [Suspect]
     Active Substance: TICAGRELOR
     Indication: ACUTE CORONARY SYNDROME
     Dosage: 180 MILLIGRAM, QD
     Route: 048
     Dates: start: 20151104, end: 20151129
  2. BRILINTA [Suspect]
     Active Substance: TICAGRELOR
     Dosage: 180 MILLIGRAM, QD
     Route: 048
     Dates: start: 20151201, end: 20151204
  3. PRINIVIL [Suspect]
     Active Substance: LISINOPRIL
     Dosage: UNK
     Route: 048
     Dates: start: 20151104

REACTIONS (3)
  - Angioedema [Recovering/Resolving]
  - Pharyngeal swelling [Recovering/Resolving]
  - Dysphagia [Recovering/Resolving]

NARRATIVE: CASE EVENT DATE: 201511
